FAERS Safety Report 9874992 (Version 1)
Quarter: 2014Q1

REPORT INFORMATION
  Report Type: Spontaneous
  Country: US (occurrence: None)
  Receive Date: 20140205
  Receipt Date: 20140205
  Transmission Date: 20141002
  Serious: Yes (Other)
  Sender: FDA-Public Use
  Company Number: None

PATIENT
  Age: 72 Year
  Sex: Female
  Weight: 85.73 kg

DRUGS (2)
  1. DULOXETINE [Suspect]
     Indication: PAIN
     Route: 048
     Dates: start: 20140125, end: 20140128
  2. DULOXETINE [Suspect]
     Indication: DEPRESSION
     Route: 048
     Dates: start: 20140125, end: 20140128

REACTIONS (3)
  - Skin tightness [None]
  - Skin burning sensation [None]
  - Unevaluable event [None]
